FAERS Safety Report 26186933 (Version 1)
Quarter: 2025Q4

REPORT INFORMATION
  Report Type: Spontaneous
  Country: GB (occurrence: GB)
  Receive Date: 20251222
  Receipt Date: 20251222
  Transmission Date: 20260117
  Serious: Yes (Life-Threatening, Other)
  Sender: MYLAN
  Company Number: None

PATIENT
  Age: 38 Year
  Sex: Female

DRUGS (13)
  1. MIRTAZAPINE [Suspect]
     Active Substance: MIRTAZAPINE
     Indication: Obsessive-compulsive disorder
     Dosage: 45 MILLIGRAM, QD
  2. MIRTAZAPINE [Suspect]
     Active Substance: MIRTAZAPINE
     Indication: Post-traumatic stress disorder
  3. OMEGA-6 FATTY ACIDS [Concomitant]
     Active Substance: OMEGA-6 FATTY ACIDS
     Indication: Aphasia
     Dosage: UNK
  4. OMEGA-6 FATTY ACIDS [Concomitant]
     Active Substance: OMEGA-6 FATTY ACIDS
     Indication: Brain fog
  5. OMEGA 9 FATTY ACIDS [Concomitant]
     Indication: Aphasia
     Dosage: UNK
  6. OMEGA 9 FATTY ACIDS [Concomitant]
     Indication: Brain fog
  7. MINERALS\VITAMINS [Concomitant]
     Active Substance: MINERALS\VITAMINS
     Indication: Breast feeding
     Dosage: UNK
  8. FERROUS FUMARATE [Concomitant]
     Active Substance: FERROUS FUMARATE
     Indication: Iron deficiency
     Dosage: 420 MILLIGRAM, QD (PER DAY)
     Dates: start: 20230801
  9. FERROUS FUMARATE [Concomitant]
     Active Substance: FERROUS FUMARATE
     Indication: Alopecia
  10. CHOLECALCIFEROL [Concomitant]
     Active Substance: CHOLECALCIFEROL
     Indication: Vitamin D decreased
     Dosage: UNK
  11. OMEGA 3 [Concomitant]
     Active Substance: CAPSAICIN
     Indication: Aphasia
     Dosage: UNK
  12. OMEGA 3 [Concomitant]
     Active Substance: CAPSAICIN
     Indication: Brain fog
  13. OMEGA 3 [Concomitant]
     Active Substance: CAPSAICIN
     Indication: Breast feeding

REACTIONS (6)
  - Cholecystitis [Unknown]
  - Pancreatitis necrotising [Unknown]
  - Weight decreased [Unknown]
  - Malnutrition [Unknown]
  - Maternal exposure during breast feeding [Unknown]
  - Pancreatitis acute [Recovering/Resolving]

NARRATIVE: CASE EVENT DATE: 20250316
